FAERS Safety Report 23832040 (Version 1)
Quarter: 2024Q2

REPORT INFORMATION
  Report Type: Spontaneous
  Country: US (occurrence: None)
  Receive Date: 20240507
  Receipt Date: 20240507
  Transmission Date: 20240716
  Serious: Yes (Hospitalization)
  Sender: FDA-Public Use
  Company Number: None

PATIENT
  Age: 76 Year
  Sex: Male
  Weight: 54.4 kg

DRUGS (1)
  1. LITHIUM CARBONATE [Suspect]
     Active Substance: LITHIUM CARBONATE
     Indication: Depression
     Dosage: FREQUENCY : TWICE A DAY;?
     Route: 048
     Dates: start: 20220823, end: 20220829

REACTIONS (13)
  - Myoclonus [None]
  - Tremor [None]
  - Mental status changes [None]
  - Aphasia [None]
  - Poverty of thought content [None]
  - Asthenia [None]
  - Renal impairment [None]
  - Blood creatinine increased [None]
  - Toxicity to various agents [None]
  - Therapy interrupted [None]
  - Overdose [None]
  - Tremor [None]
  - Sedation [None]

NARRATIVE: CASE EVENT DATE: 20220831
